FAERS Safety Report 8954803 (Version 1)
Quarter: 2012Q4

REPORT INFORMATION
  Report Type: Spontaneous
  Country: US (occurrence: None)
  Receive Date: 20121204
  Receipt Date: 20121204
  Transmission Date: 20130627
  Serious: Yes (Other)
  Sender: FDA-Public Use
  Company Number: None

PATIENT
  Age: 56 Year
  Sex: Female

DRUGS (1)
  1. CIMZIA 200 MG/ML PFS UCB PHARMA [Suspect]
     Indication: RA
     Dosage: 400 mg q wk SQ
     Route: 058
     Dates: start: 20120801, end: 20121107

REACTIONS (1)
  - Drug ineffective [None]
